FAERS Safety Report 15493984 (Version 1)
Quarter: 2018Q4

REPORT INFORMATION
  Report Type: Spontaneous
  Country: US (occurrence: US)
  Receive Date: 20181005
  Receipt Date: 20181005
  Transmission Date: 20190205
  Serious: No
  Sender: FDA-Public Use
  Company Number: None

PATIENT
  Age: 76 Year
  Sex: Female

DRUGS (1)
  1. OTEZLA [Suspect]
     Active Substance: APREMILAST
     Indication: PSORIASIS
     Route: 048
     Dates: start: 201808

REACTIONS (8)
  - Dyspnoea [None]
  - Haemorrhage [None]
  - Condition aggravated [None]
  - Chest pain [None]
  - Drug ineffective [None]
  - Headache [None]
  - Psoriasis [None]
  - Nausea [None]
